FAERS Safety Report 9145357 (Version 1)
Quarter: 2013Q1

REPORT INFORMATION
  Report Type: Spontaneous
  Country: US (occurrence: None)
  Receive Date: 20130226
  Receipt Date: 20130226
  Transmission Date: 20140127
  Serious: Yes (Other)
  Sender: FDA-Public Use
  Company Number: None

PATIENT
  Sex: Female
  Weight: 63.96 kg

DRUGS (1)
  1. EXELON PATCH 4.6 [Suspect]
     Dosage: 1 PATCH DAILY TRANSDERMAL
     Route: 062
     Dates: start: 20130213, end: 20130218

REACTIONS (1)
  - Depression [None]
